FAERS Safety Report 7296753-8 (Version None)
Quarter: 2011Q1

REPORT INFORMATION
  Report Type: 
  Country: None (occurrence: None)
  Receive Date: 20110216
  Receipt Date: 20110214
  Transmission Date: 20110831
  Serious: Yes (Other)
  Sender: FDA-Public Use
  Company Number: A0904097A

PATIENT
  Age: 38 Year
  Sex: Female
  Weight: 70 kg

DRUGS (2)
  1. TYKERB [Suspect]
     Dosage: 1500MG PER DAY
     Route: 048
  2. LETROZOLE [Concomitant]

REACTIONS (4)
  - ONYCHALGIA [None]
  - ERYTHEMA [None]
  - RASH PUSTULAR [None]
  - SWELLING [None]
